FAERS Safety Report 8797114 (Version 2)
Quarter: 2012Q4

REPORT INFORMATION
  Report Type: Report from Study
  Country: DE (occurrence: DE)
  Receive Date: 20120919
  Receipt Date: 20121008
  Transmission Date: 20130627
  Serious: Yes (Hospitalization)
  Sender: FDA-Public Use
  Company Number: DE-GLAXOSMITHKLINE-B0831428A

PATIENT
  Age: 59 Year
  Sex: Female
  Weight: 67 kg

DRUGS (4)
  1. LAPATINIB [Suspect]
     Indication: BREAST CANCER
     Dosage: 750MG Per day
     Route: 048
     Dates: start: 20120726, end: 20120830
  2. PACLITAXEL [Suspect]
     Indication: BREAST CANCER
     Dosage: 142MG Weekly
     Route: 042
     Dates: start: 20120726, end: 20120830
  3. MYOCET [Suspect]
     Indication: BREAST CANCER
     Dosage: 36MG Weekly
     Route: 042
     Dates: start: 20120726, end: 20120830
  4. HERCEPTIN [Suspect]
     Indication: BREAST CANCER
     Dosage: 400MG Cyclic
     Route: 042
     Dates: start: 20120726, end: 20120830

REACTIONS (2)
  - Impetigo [Recovered/Resolved]
  - Chills [Recovered/Resolved]
